FAERS Safety Report 15193113 (Version 1)
Quarter: 2018Q3

REPORT INFORMATION
  Report Type: Spontaneous
  Country: US (occurrence: US)
  Receive Date: 20180725
  Receipt Date: 20180725
  Transmission Date: 20181010
  Serious: No
  Sender: FDA-Public Use
  Company Number: US-TEVA-2018-US-930731

PATIENT
  Sex: Male

DRUGS (1)
  1. VALSARTAN W/HYDROCHLOROTHIAZIDE [Suspect]
     Active Substance: HYDROCHLOROTHIAZIDE\VALSARTAN
     Indication: HYPERTENSION
     Dosage: DOSE STRENGTH:  160/25MG
     Dates: start: 201804

REACTIONS (3)
  - Somnolence [Unknown]
  - Decreased activity [Unknown]
  - Asthenia [Unknown]

NARRATIVE: CASE EVENT DATE: 201806
